FAERS Safety Report 6751703-5 (Version None)
Quarter: 2010Q2

REPORT INFORMATION
  Report Type: 
  Country: None (occurrence: None)
  Receive Date: 20100602
  Receipt Date: 20100518
  Transmission Date: 20101027
  Serious: Yes (Hospitalization)
  Sender: FDA-Public Use
  Company Number: B0657595A

PATIENT
  Age: 54 Year
  Sex: Male

DRUGS (9)
  1. ALLOPURINOL [Suspect]
     Dosage: 150MG PER DAY
     Route: 048
     Dates: end: 20100423
  2. METFORMIN HCL [Suspect]
     Dosage: 500MG PER DAY
     Route: 048
     Dates: start: 20080701, end: 20100422
  3. OMACOR [Suspect]
     Dosage: 400MG PER DAY
     Route: 048
     Dates: start: 20090701, end: 20100423
  4. ACTOS [Suspect]
     Dosage: 15MG PER DAY
     Route: 048
     Dates: start: 20090713, end: 20100423
  5. CRESTOR [Suspect]
     Dosage: 10MG PER DAY
     Route: 048
     Dates: start: 20091008, end: 20100423
  6. JANUMET [Suspect]
     Route: 048
     Dates: start: 20090101, end: 20100423
  7. RASILEZ [Suspect]
     Dosage: 150MG PER DAY
     Route: 048
     Dates: start: 20070101, end: 20100423
  8. RAMIPRIL [Concomitant]
     Route: 065
     Dates: start: 20051001
  9. METOHEXAL [Concomitant]
     Route: 065
     Dates: start: 20051001

REACTIONS (1)
  - LIVER INJURY [None]
